FAERS Safety Report 19963789 (Version 2)
Quarter: 2021Q4

REPORT INFORMATION
  Report Type: Spontaneous
  Country: US (occurrence: US)
  Receive Date: 20211018
  Receipt Date: 20211125
  Transmission Date: 20220303
  Serious: Yes (Hospitalization, Other)
  Sender: FDA-Public Use
  Company Number: US-GLAXOSMITHKLINE-USCH2021AMR070603

PATIENT
  Age: 73 Year
  Sex: Male
  Weight: 67.8 kg

DRUGS (1)
  1. IBUPROFEN [Suspect]
     Active Substance: IBUPROFEN
     Indication: Chest pain
     Dosage: UNK

REACTIONS (4)
  - Gastric ulcer haemorrhage [Recovered/Resolved]
  - Gastritis erosive [Recovered/Resolved]
  - Erosive oesophagitis [Recovered/Resolved]
  - Anaemia [Recovered/Resolved]

NARRATIVE: CASE EVENT DATE: 20210616
